FAERS Safety Report 4786430-7 (Version None)
Quarter: 2005Q4

REPORT INFORMATION
  Report Type: 
  Country: None (occurrence: None)
  Receive Date: 20051003
  Receipt Date: 20050923
  Transmission Date: 20060501
  Serious: Yes (Hospitalization, Other)
  Sender: FDA-Public Use
  Company Number: US-MERCK-0509USA03965

PATIENT
  Age: 69 Year
  Sex: Female
  Weight: 67 kg

DRUGS (5)
  1. VIOXX [Suspect]
     Indication: PAIN IN EXTREMITY
     Route: 048
     Dates: start: 20020601, end: 20040818
  2. HYDROCHLOROTHIAZIDE [Concomitant]
     Route: 065
  3. POTASSIUM (UNSPECIFIED) [Concomitant]
     Route: 065
  4. ALPRAZOLAM [Concomitant]
     Route: 065
  5. DELTASONE [Concomitant]
     Route: 065

REACTIONS (15)
  - ASTHMA [None]
  - ATELECTASIS [None]
  - DYSPHAGIA [None]
  - GASTRIC ADENOMA [None]
  - GASTRITIS [None]
  - HYPERTENSION [None]
  - HYPOTHYROIDISM [None]
  - ILEUS [None]
  - INSOMNIA [None]
  - LYMPHOMA [None]
  - POLYP [None]
  - RESTLESS LEGS SYNDROME [None]
  - SYNCOPE [None]
  - TRACHEOBRONCHITIS [None]
  - TRANSIENT ISCHAEMIC ATTACK [None]
